FAERS Safety Report 21682415 (Version 2)
Quarter: 2022Q4

REPORT INFORMATION
  Report Type: Other
  Country: US (occurrence: None)
  Receive Date: 20221205
  Receipt Date: 20221212
  Transmission Date: 20230113
  Serious: Yes (Other)
  Sender: FDA-Public Use
  Company Number: US-ROCHE-3229891

PATIENT
  Age: 40 Year
  Sex: Female
  Weight: 91.254 kg

DRUGS (9)
  1. RITUXAN [Suspect]
     Active Substance: RITUXIMAB
     Indication: Systemic lupus erythematosus
     Route: 041
     Dates: start: 20221123
  2. CELLCEPT [Suspect]
     Active Substance: MYCOPHENOLATE MOFETIL
     Indication: Product used for unknown indication
     Dosage: NO
     Route: 065
     Dates: start: 202204, end: 202207
  3. CELLCEPT [Suspect]
     Active Substance: MYCOPHENOLATE MOFETIL
     Route: 065
     Dates: start: 202207, end: 202209
  4. MORPHINE [Concomitant]
     Active Substance: MORPHINE
     Route: 042
     Dates: start: 20221123
  5. MORPHINE [Concomitant]
     Active Substance: MORPHINE
  6. KETAMINE [Concomitant]
     Active Substance: KETAMINE
     Indication: Neuralgia
     Dosage: 1 SPRAY IN EACH NOSTRIL (2 SPRAYS TOTAL)
     Route: 045
     Dates: start: 2022
  7. BENADRYL [Concomitant]
     Active Substance: DIPHENHYDRAMINE HYDROCHLORIDE
     Indication: Premedication
  8. BENADRYL [Concomitant]
     Active Substance: DIPHENHYDRAMINE HYDROCHLORIDE
     Route: 048
  9. ZOLMITRIPTAN [Concomitant]
     Active Substance: ZOLMITRIPTAN

REACTIONS (18)
  - Impaired gastric emptying [Unknown]
  - Pruritus [Recovered/Resolved]
  - Tremor [Recovered/Resolved]
  - Pernicious anaemia [Unknown]
  - Diarrhoea [Recovered/Resolved]
  - Vomiting [Recovered/Resolved]
  - Nausea [Recovered/Resolved]
  - Cold sweat [Recovered/Resolved]
  - Fatigue [Recovered/Resolved]
  - Off label use [Unknown]
  - Dyskinesia [Unknown]
  - Muscle twitching [Unknown]
  - Feeling abnormal [Unknown]
  - Pyrexia [Recovered/Resolved]
  - Pain [Recovered/Resolved]
  - Headache [Recovered/Resolved]
  - Fatigue [Unknown]
  - Incorrect drug administration rate [Unknown]

NARRATIVE: CASE EVENT DATE: 20221123
